FAERS Safety Report 9943082 (Version 1)
Quarter: 2014Q1

REPORT INFORMATION
  Report Type: Spontaneous
  Country: DE (occurrence: DE)
  Receive Date: 20140303
  Receipt Date: 20140303
  Transmission Date: 20141002
  Serious: Yes (Congenital Anomaly)
  Sender: FDA-Public Use
  Company Number: DE-TEVA-463780GER

PATIENT
  Age: 1 Day
  Sex: Female

DRUGS (1)
  1. METHOTREXAT [Suspect]
     Dosage: THE SUSPECT MEDICATION WAS TAKEN BY THE FATHER
     Route: 065

REACTIONS (3)
  - Deafness congenital [Not Recovered/Not Resolved]
  - Large for dates baby [Unknown]
  - Live birth [Unknown]
